FAERS Safety Report 22873686 (Version 5)
Quarter: 2023Q4

REPORT INFORMATION
  Report Type: Report from Study
  Country: HU (occurrence: None)
  Receive Date: 20230828
  Receipt Date: 20231124
  Transmission Date: 20240110
  Serious: Yes (Other)
  Sender: FDA-Public Use
  Company Number: HU-ROCHE-3409214

PATIENT
  Age: 67 Year
  Sex: Female
  Weight: 79.6 kg

DRUGS (35)
  1. ATEZOLIZUMAB [Suspect]
     Active Substance: ATEZOLIZUMAB
     Indication: Small cell lung cancer extensive stage
     Dosage: ON 31/JUL/2023 MOST RECENT DOSE OF ATEZOLIZUMAB (1200 MG) PRIOR TO AE/SAE. ON 15/MAY/2023 MOST RECEN
     Route: 041
     Dates: start: 20230327
  2. LURBINECTEDIN [Suspect]
     Active Substance: LURBINECTEDIN
     Indication: Small cell lung cancer extensive stage
     Dosage: ON 31/JUL/2023 MOST RECENT DOSE OF LURBINECTEDIN (5.75 MG) PRIOR TO AE/SAE.
     Route: 042
     Dates: start: 20230731
  3. CARBOPLATIN [Suspect]
     Active Substance: CARBOPLATIN
     Indication: Small cell lung cancer extensive stage
     Dosage: ON 15/MAY/2023, SHE RECEIVED MOST RECENT DOSE OF STUDY DRUG PRIOR TO AE (1200MG)
     Route: 042
     Dates: start: 20230327
  4. ETOPOSIDE [Suspect]
     Active Substance: ETOPOSIDE
     Indication: Small cell lung cancer extensive stage
     Dosage: ON 15/MAY/2023 MOST RECENT DOSE OF ETOPOSIDE (182 MG) PRIOR TO AE/SAE.
     Route: 065
     Dates: start: 20230327
  5. ERYTHROPOIETIN [Concomitant]
     Active Substance: ERYTHROPOIETIN
     Indication: Anaemia
     Dates: start: 20230524
  6. FUROSEMIDE [Concomitant]
     Active Substance: FUROSEMIDE
     Indication: Hyperkalaemia
     Dates: start: 20230605, end: 20230611
  7. FUROSEMIDE [Concomitant]
     Active Substance: FUROSEMIDE
     Dates: start: 20230621, end: 20230623
  8. FUROSEMIDE [Concomitant]
     Active Substance: FUROSEMIDE
     Dates: start: 20230807, end: 20230807
  9. SALSOL [SODIUM CHLORIDE] [Concomitant]
     Dates: start: 20230605, end: 20230609
  10. SALSOL [SODIUM CHLORIDE] [Concomitant]
     Dates: start: 20230621, end: 20230623
  11. SALSOL [SODIUM CHLORIDE] [Concomitant]
     Dates: start: 20230807, end: 20230807
  12. DEXAMETHASONE [Concomitant]
     Active Substance: DEXAMETHASONE
     Route: 048
     Dates: start: 20230821, end: 20230903
  13. DEXAMETHASONE [Concomitant]
     Active Substance: DEXAMETHASONE
     Route: 048
     Dates: start: 20230821, end: 20230903
  14. DEXAMETHASONE [Concomitant]
     Active Substance: DEXAMETHASONE
     Route: 048
     Dates: start: 20230904
  15. PANTOPRAZOLE [Concomitant]
     Active Substance: PANTOPRAZOLE
     Dates: start: 20230710, end: 20230726
  16. PANTOPRAZOLE [Concomitant]
     Active Substance: PANTOPRAZOLE
     Dates: start: 20230821
  17. POTASSIUM CHLORIDE [Concomitant]
     Active Substance: POTASSIUM CHLORIDE
     Dates: start: 20230710, end: 20230726
  18. GLYCERIN [Concomitant]
     Active Substance: GLYCERIN
     Dates: start: 20230710, end: 20230726
  19. NATRIUMPOLYSTYRENSULFONAT [Concomitant]
     Dates: start: 20230731
  20. DEXTROSE [Concomitant]
     Active Substance: DEXTROSE\DEXTROSE MONOHYDRATE
     Dates: start: 20230807, end: 20230807
  21. ACTRAPID [Concomitant]
     Active Substance: INSULIN HUMAN
     Dates: start: 20230807, end: 20230807
  22. SODIUM BICARBONATE [Concomitant]
     Active Substance: SODIUM BICARBONATE
     Dates: start: 20230807, end: 20230807
  23. CALCIUM GLUCONATE [Concomitant]
     Active Substance: CALCIUM GLUCONATE
     Dates: start: 20230807
  24. TAMOXIFEN CITRATE [Concomitant]
     Active Substance: TAMOXIFEN CITRATE
     Dates: start: 2020
  25. FILGRASTIM [Concomitant]
     Active Substance: FILGRASTIM
     Indication: Neutropenia
     Route: 030
     Dates: start: 20230330
  26. FILGRASTIM [Concomitant]
     Active Substance: FILGRASTIM
     Route: 030
     Dates: start: 20230405
  27. ONDANSETRON [Concomitant]
     Active Substance: ONDANSETRON
     Dates: start: 20230327
  28. ONDANSETRON [Concomitant]
     Active Substance: ONDANSETRON
     Dates: start: 20230731
  29. FERRITIN [Concomitant]
     Active Substance: FERRITIN
     Dates: start: 20230411
  30. FERRIC GLUCONATE TRIHYDRATE [Concomitant]
     Active Substance: FERRIC GLUCONATE TRIHYDRATE
     Dates: start: 20230508, end: 20230512
  31. FERRIC GLUCONATE TRIHYDRATE [Concomitant]
     Active Substance: FERRIC GLUCONATE TRIHYDRATE
     Dates: start: 20230605, end: 20230609
  32. FERRIC GLUCONATE TRIHYDRATE [Concomitant]
     Active Substance: FERRIC GLUCONATE TRIHYDRATE
     Dates: start: 20230621, end: 20230623
  33. BISOPROLOL [Concomitant]
     Active Substance: BISOPROLOL\BISOPROLOL FUMARATE
     Dates: start: 2021
  34. FOSFOMYCIN [Concomitant]
     Active Substance: FOSFOMYCIN
     Indication: Proteinuria
     Dates: start: 20230823, end: 20230825
  35. UNSPECIFIED INGREDIENT [Concomitant]
     Active Substance: UNSPECIFIED INGREDIENT
     Indication: Pulmonary embolism
     Dates: start: 20231024

REACTIONS (2)
  - Nephropathy [Recovering/Resolving]
  - Nephropathy [Not Recovered/Not Resolved]

NARRATIVE: CASE EVENT DATE: 20230605
